FAERS Safety Report 9845083 (Version 1)
Quarter: 2014Q1

REPORT INFORMATION
  Report Type: Spontaneous
  Country: TW (occurrence: None)
  Receive Date: 20140122
  Receipt Date: 20140122
  Transmission Date: 20141002
  Serious: Yes (Other)
  Sender: FDA-Public Use
  Company Number: 2014P1000128

PATIENT
  Age: 66 Year
  Sex: Male

DRUGS (3)
  1. FLUCONAZOLE [Suspect]
     Route: 042
  2. MEROPENUM [Suspect]
  3. TEICOPLANIN [Suspect]

REACTIONS (5)
  - Renal failure acute [None]
  - Shock [None]
  - Acute hepatic failure [None]
  - Hepatic encephalopathy [None]
  - Acinetobacter infection [None]
